FAERS Safety Report 21855711 (Version 2)
Quarter: 2023Q1

REPORT INFORMATION
  Report Type: Report from Study
  Country: BR (occurrence: BR)
  Receive Date: 20230112
  Receipt Date: 20230213
  Transmission Date: 20230417
  Serious: Yes (Other)
  Sender: FDA-Public Use
  Company Number: BR-JNJFOC-20230115861

PATIENT
  Age: 34 Year
  Sex: Female
  Weight: 57 kg

DRUGS (6)
  1. REMICADE [Suspect]
     Active Substance: INFLIXIMAB
     Indication: Rheumatoid arthritis
     Route: 041
     Dates: start: 202105, end: 202210
  2. DULOXETINE [Concomitant]
     Active Substance: DULOXETINE
  3. PREDNISONE [Concomitant]
     Active Substance: PREDNISONE
  4. FAMOTIDINE [Concomitant]
     Active Substance: FAMOTIDINE
  5. HERBALS\TURMERIC [Concomitant]
     Active Substance: HERBALS\TURMERIC
  6. INDOMETACINA [INDOMETACIN] [Concomitant]

REACTIONS (4)
  - Rheumatoid arthritis [Unknown]
  - COVID-19 [Unknown]
  - Drug ineffective [Unknown]
  - Fibromyalgia [Unknown]

NARRATIVE: CASE EVENT DATE: 20210501
